FAERS Safety Report 5715848-0 (Version None)
Quarter: 2008Q2

REPORT INFORMATION
  Report Type: 
  Country: None (occurrence: None)
  Receive Date: 20080424
  Receipt Date: 20080416
  Transmission Date: 20081010
  Serious: Yes (Other)
  Sender: FDA-Public Use
  Company Number: US-ASTRAZENECA-2008UW07804

PATIENT
  Age: 60 Year
  Sex: Male

DRUGS (4)
  1. CRESTOR [Suspect]
     Indication: BLOOD CHOLESTEROL INCREASED
     Route: 048
     Dates: start: 20080301
  2. PLAVIX [Concomitant]
  3. TRAZODONE HCL [Concomitant]
  4. ASPIRIN [Concomitant]

REACTIONS (1)
  - CONVULSION [None]
